FAERS Safety Report 4664346-4 (Version None)
Quarter: 2005Q2

REPORT INFORMATION
  Report Type: 
  Country: None (occurrence: None)
  Receive Date: 20050518
  Receipt Date: 20050503
  Transmission Date: 20051028
  Serious: Yes (Other)
  Sender: FDA-Public Use
  Company Number: 2005GB00878

PATIENT
  Age: 85 Year
  Sex: Female

DRUGS (8)
  1. LIGNOCAINE [Suspect]
     Dosage: 40MG/2ML, 2% STRENGTH
     Route: 042
  2. AMETHOCAINE [Suspect]
     Dosage: 1 + 0.5%
     Route: 065
  3. HEALONID [Suspect]
     Route: 065
  4. GENTAMICIN [Suspect]
     Dosage: 80MG/2ML
     Route: 065
  5. CYCLOPENTOLATE HCL [Suspect]
     Route: 065
  6. PHENYLEPHRINE [Suspect]
     Route: 065
  7. BENOXINATE HYDROCHLORIDE [Suspect]
     Route: 065
  8. ZINACEF [Suspect]
     Route: 042

REACTIONS (1)
  - CORNEAL EPITHELIUM DISORDER [None]
